FAERS Safety Report 8236613-9 (Version None)
Quarter: 2012Q1

REPORT INFORMATION
  Report Type: 
  Country: None (occurrence: None)
  Receive Date: 20120327
  Receipt Date: 20120319
  Transmission Date: 20120608
  Serious: Yes (Hospitalization, Other)
  Sender: FDA-Public Use
  Company Number: US-BAYER-2012-005956

PATIENT
  Age: 20 Year
  Sex: Female
  Weight: 58.957 kg

DRUGS (4)
  1. MOTRIN [Concomitant]
     Dosage: VARIOUS
  2. YASMIN [Suspect]
     Indication: CONTRACEPTION
     Dosage: 1 TABLET, QD
     Route: 048
     Dates: start: 20010101, end: 20070101
  3. YASMIN [Suspect]
     Indication: ACNE
  4. ANTIBIOTICS [Concomitant]
     Dosage: VARIOUS

REACTIONS (3)
  - CHOLECYSTITIS CHRONIC [None]
  - MENTAL DISORDER [None]
  - CHOLELITHIASIS [None]
